FAERS Safety Report 5696417-8 (Version None)
Quarter: 2008Q2

REPORT INFORMATION
  Report Type: 
  Country: None (occurrence: None)
  Receive Date: 20080408
  Receipt Date: 20080324
  Transmission Date: 20081010
  Serious: Yes (Hospitalization)
  Sender: FDA-Public Use
  Company Number: US-ELI_LILLY_AND_COMPANY-US200803000341

PATIENT
  Age: 71 Year
  Sex: Female
  Weight: 64.399 kg

DRUGS (4)
  1. EVISTA [Suspect]
     Indication: OSTEOPOROSIS
     Dosage: 60 MG, UNK
     Dates: start: 20080130, end: 20080202
  2. EVISTA [Suspect]
     Dosage: 60 MG, UNK
     Dates: start: 20080101
  3. LISINOPRIL [Concomitant]
     Dosage: 10 MG, UNK
  4. LIDODERM [Concomitant]
     Dosage: 700 MG, UNK

REACTIONS (1)
  - MOUTH ULCERATION [None]
